FAERS Safety Report 17971092 (Version 1)
Quarter: 2020Q3

REPORT INFORMATION
  Report Type: Spontaneous
  Country: HR (occurrence: HR)
  Receive Date: 20200701
  Receipt Date: 20200701
  Transmission Date: 20201103
  Serious: Yes (Hospitalization)
  Sender: FDA-Public Use
  Company Number: HR-B.I. PHARMACEUTICALS,INC./RIDGEFIELD-2020-12-031478

PATIENT
  Age: 57 Year
  Sex: Female

DRUGS (15)
  1. MIRAPEXIN [Interacting]
     Active Substance: PRAMIPEXOLE
     Indication: MOVEMENT DISORDER
  2. BYOL COR [Concomitant]
     Active Substance: BISOPROLOL FUMARATE
     Indication: ATRIAL FLUTTER
     Route: 048
     Dates: start: 20200326
  3. BYOL COR [Concomitant]
     Active Substance: BISOPROLOL FUMARATE
     Indication: ATRIAL FIBRILLATION
  4. MADOPAR [Interacting]
     Active Substance: BENSERAZIDE HYDROCHLORIDE\LEVODOPA
     Indication: MOVEMENT DISORDER
     Dosage: 1 DF = 25 MG  BENSERAZIDE HYDROCHLORIDE + 100 MG LEVODOPA?DOSAGE: 1+1/2+1
     Route: 048
     Dates: start: 20180924
  5. MARTEFARIN [Concomitant]
     Active Substance: WARFARIN
     Indication: ATRIAL FLUTTER
  6. MIRAPEXIN [Suspect]
     Active Substance: PRAMIPEXOLE
     Indication: EXTRAPYRAMIDAL DISORDER
     Dosage: 1.05 + 0.52 UJUTRO
     Route: 048
     Dates: start: 20190110
  7. LORSILAN [Concomitant]
     Active Substance: LORAZEPAM
     Indication: PRODUCT USED FOR UNKNOWN INDICATION
     Route: 048
  8. ZALDIAR [Concomitant]
     Active Substance: ACETAMINOPHEN\TRAMADOL HYDROCHLORIDE
     Indication: PRODUCT USED FOR UNKNOWN INDICATION
     Dosage: ; AS REQUIRED
     Route: 048
  9. MARTEFARIN [Concomitant]
     Active Substance: WARFARIN
     Indication: CEREBRAL INFARCTION
  10. CO DALNEVA [Concomitant]
     Indication: ESSENTIAL HYPERTENSION
     Dosage: 1 DF = 10 MG AMLODIPINE + 2.5 MG INDAPAMIDE + 8 MG PERINDOPRIL ERBUMINE
     Route: 048
     Dates: start: 20200409
  11. BRINTELLIX [Interacting]
     Active Substance: VORTIOXETINE HYDROBROMIDE
     Indication: EXTRAPYRAMIDAL DISORDER
     Dosage: UJUTRO
     Route: 048
     Dates: start: 20190624
  12. BRINTELLIX [Interacting]
     Active Substance: VORTIOXETINE HYDROBROMIDE
     Indication: MOVEMENT DISORDER
  13. MADOPAR [Interacting]
     Active Substance: BENSERAZIDE HYDROCHLORIDE\LEVODOPA
     Indication: EXTRAPYRAMIDAL DISORDER
  14. MARTEFARIN [Concomitant]
     Active Substance: WARFARIN
     Indication: ATRIAL FIBRILLATION
     Route: 048
     Dates: start: 20200604
  15. BYOL COR [Concomitant]
     Active Substance: BISOPROLOL FUMARATE
     Indication: ESSENTIAL HYPERTENSION

REACTIONS (3)
  - Tendon rupture [Not Recovered/Not Resolved]
  - Muscle strain [Not Recovered/Not Resolved]
  - Myalgia [Not Recovered/Not Resolved]

NARRATIVE: CASE EVENT DATE: 20200413
